FAERS Safety Report 7348863-4 (Version None)
Quarter: 2011Q1

REPORT INFORMATION
  Report Type: 
  Country: None (occurrence: None)
  Receive Date: 20110225
  Receipt Date: 20101209
  Transmission Date: 20110831
  Serious: Yes (Hospitalization)
  Sender: FDA-Public Use
  Company Number: 319824

PATIENT
  Age: 58 Year
  Sex: Female
  Weight: 119.7 kg

DRUGS (5)
  1. VICTOZA [Suspect]
     Indication: TYPE 2 DIABETES MELLITUS
     Dosage: MG, QD, SUBCUTANEOUS
     Route: 058
     Dates: start: 20100801, end: 20101111
  2. LIPITOR [Concomitant]
  3. ASPIRIN [Concomitant]
  4. DIOVAN HCT [Concomitant]
  5. NEURONTIN [Concomitant]

REACTIONS (1)
  - PANCREATITIS [None]
